FAERS Safety Report 9914900 (Version 2)
Quarter: 2014Q1

REPORT INFORMATION
  Report Type: Spontaneous
  Country: US (occurrence: US)
  Receive Date: 20140220
  Receipt Date: 20140220
  Transmission Date: 20141002
  Serious: No
  Sender: FDA-Public Use
  Company Number: US-PFIZER INC-2013330680

PATIENT
  Age: 39 Year
  Sex: Female

DRUGS (7)
  1. ENBREL [Suspect]
     Dosage: 50 MG, UNK
     Route: 065
  2. XELJANZ [Suspect]
     Dosage: 50 MG, BID
     Route: 048
     Dates: start: 201308
  3. XELJANZ [Suspect]
     Dosage: UNK
  4. NAPROXEN SODIUM [Concomitant]
     Dosage: 550 MG, UNK
  5. CALCIUM + VIT D [Concomitant]
     Dosage: UNK
  6. FOLIC ACID [Concomitant]
  7. METHOTREXATE [Concomitant]

REACTIONS (1)
  - Drug hypersensitivity [Unknown]
